FAERS Safety Report 6167437-4 (Version None)
Quarter: 2009Q2

REPORT INFORMATION
  Report Type: 
  Country: None (occurrence: None)
  Receive Date: 20090424
  Receipt Date: 20090422
  Transmission Date: 20091009
  Serious: Yes (Death, Hospitalization, Other)
  Sender: FDA-Public Use
  Company Number: PHHY2009BR15263

PATIENT
  Age: 63 Year
  Sex: Female

DRUGS (2)
  1. FORASEQ [Suspect]
     Dosage: 12/400 MCG 60/60
  2. FORASEQ [Suspect]
     Dosage: 12/400 MCG 60/60

REACTIONS (2)
  - INFARCTION [None]
  - SYNCOPE [None]
